FAERS Safety Report 12395316 (Version 1)
Quarter: 2016Q2

REPORT INFORMATION
  Report Type: Spontaneous
  Country: US (occurrence: US)
  Receive Date: 20160523
  Receipt Date: 20160523
  Transmission Date: 20160815
  Serious: Yes (Other)
  Sender: FDA-Public Use
  Company Number: PHHY2016US068662

PATIENT
  Sex: Female

DRUGS (2)
  1. TRAMADOL. [Suspect]
     Active Substance: TRAMADOL
     Indication: PRODUCT USED FOR UNKNOWN INDICATION
     Route: 065
  2. DIPHENHYDRAMINE. [Suspect]
     Active Substance: DIPHENHYDRAMINE
     Indication: PRODUCT USED FOR UNKNOWN INDICATION
     Route: 065

REACTIONS (7)
  - Electrocardiogram QT prolonged [Unknown]
  - Toxicity to various agents [Unknown]
  - Hallucination [Unknown]
  - Acute kidney injury [Unknown]
  - Hypertension [Unknown]
  - Metabolic acidosis [Unknown]
  - Pneumonia aspiration [Unknown]
